FAERS Safety Report 24982147 (Version 1)
Quarter: 2025Q1

REPORT INFORMATION
  Report Type: Spontaneous
  Country: US (occurrence: None)
  Receive Date: 20250216
  Receipt Date: 20250216
  Transmission Date: 20250409
  Serious: Yes (Disabling)
  Sender: FDA-CTU
  Company Number: None

PATIENT
  Age: 65 Year
  Sex: Female
  Weight: 91.8 kg

DRUGS (2)
  1. CELECOXIB [Suspect]
     Active Substance: CELECOXIB
     Indication: Knee arthroplasty
     Route: 048
     Dates: start: 20250203, end: 20250215
  2. Oxycodone w/acetaminophen 7.5/325 mg [Concomitant]

REACTIONS (4)
  - Nasopharyngitis [None]
  - Influenza like illness [None]
  - Peripheral swelling [None]
  - Peripheral swelling [None]

NARRATIVE: CASE EVENT DATE: 20250215
